FAERS Safety Report 7437233-6 (Version None)
Quarter: 2011Q2

REPORT INFORMATION
  Report Type: 
  Country: None (occurrence: None)
  Receive Date: 20110426
  Receipt Date: 20110330
  Transmission Date: 20111010
  Serious: No
  Sender: FDA-Public Use
  Company Number: US-B.I. PHARMACEUTICALS,INC./RIDGEFIELD-2011-BP-09665BP

PATIENT
  Sex: Male

DRUGS (8)
  1. FLOMAX [Suspect]
     Dosage: 0.8 MG
     Route: 048
     Dates: start: 20080101
  2. PRADAXA [Suspect]
     Indication: ATRIAL FIBRILLATION
  3. LYRICA [Concomitant]
     Indication: FIBROMYALGIA
  4. ANDROGEL [Concomitant]
     Indication: BLOOD TESTOSTERONE DECREASED
  5. ACIPHEX [Concomitant]
     Indication: DYSPEPSIA
  6. FLOMAX [Suspect]
     Indication: BENIGN PROSTATIC HYPERPLASIA
     Dosage: 0.4 MG
     Route: 048
     Dates: end: 20080101
  7. DILTIAZEM [Concomitant]
     Indication: HYPERTENSION
  8. PRAVACHOL [Concomitant]
     Indication: BLOOD CHOLESTEROL INCREASED

REACTIONS (3)
  - URINARY INCONTINENCE [None]
  - GOUT [None]
  - POLLAKIURIA [None]
